FAERS Safety Report 4657398-9 (Version None)
Quarter: 2005Q2

REPORT INFORMATION
  Report Type: 
  Country: None (occurrence: None)
  Receive Date: 20050405
  Receipt Date: 20041209
  Transmission Date: 20051028
  Serious: Yes (Hospitalization)
  Sender: FDA-Public Use
  Company Number: 2004067378

PATIENT
  Age: 37 Year
  Sex: Female

DRUGS (4)
  1. GEODON [Suspect]
     Indication: MAJOR DEPRESSION
     Dosage: 80 MG (40 MG, 2 IN 1 D)
     Dates: start: 20040805
  2. TIAGABINE HYDROCHLORIDE [Concomitant]
  3. PAROXETINE HYDROCHLORIDE [Concomitant]
  4. LANSOPRAZOLE [Concomitant]

REACTIONS (3)
  - DYSMENORRHOEA [None]
  - MENSTRUAL DISORDER [None]
  - UTERINE HAEMORRHAGE [None]
